FAERS Safety Report 7017915-0 (Version None)
Quarter: 2010Q3

REPORT INFORMATION
  Report Type: 
  Country: None (occurrence: None)
  Receive Date: 20100909
  Receipt Date: 20100607
  Transmission Date: 20110219
  Serious: No
  Sender: FDA-Public Use
  Company Number: 2010SP032214

PATIENT
  Sex: Male

DRUGS (1)
  1. SAPHRIS [Suspect]
     Indication: BIPOLAR DISORDER
     Dosage: 5 MG; PO
     Route: 048
     Dates: start: 20100604

REACTIONS (3)
  - GLOSSITIS [None]
  - INCORRECT ROUTE OF DRUG ADMINISTRATION [None]
  - STOMATITIS [None]
